FAERS Safety Report 7190723-6 (Version None)
Quarter: 2010Q4

REPORT INFORMATION
  Report Type: 
  Country: None (occurrence: None)
  Receive Date: 20101223
  Receipt Date: 20101220
  Transmission Date: 20110411
  Serious: Yes (Other)
  Sender: FDA-Public Use
  Company Number: US-US-EMD SERONO, INC.-7024966

PATIENT
  Sex: Male

DRUGS (8)
  1. REBIF [Suspect]
     Indication: RELAPSING-REMITTING MULTIPLE SCLEROSIS
     Route: 058
     Dates: start: 20100921
  2. PLAVIX [Suspect]
     Route: 048
  3. ASPIRIN [Suspect]
     Route: 048
  4. HEART PILLS [Concomitant]
  5. NITROGLYCERIN [Concomitant]
  6. UNSPECIFIED MEDICATION [Concomitant]
     Indication: PREMEDICATION
  7. CARBAMAZEPINE [Concomitant]
     Indication: CONVULSION
     Route: 048
  8. ZOCOR [Concomitant]
     Indication: LIPIDS INCREASED
     Route: 048

REACTIONS (7)
  - ASTHENIA [None]
  - DYSPNOEA [None]
  - EYE PAIN [None]
  - HAEMOPTYSIS [None]
  - PAIN [None]
  - PYREXIA [None]
  - VISION BLURRED [None]
